FAERS Safety Report 12735498 (Version 1)
Quarter: 2016Q3

REPORT INFORMATION
  Report Type: Spontaneous
  Country: AU (occurrence: AU)
  Receive Date: 20160912
  Receipt Date: 20160912
  Transmission Date: 20161109
  Serious: Yes (Other)
  Sender: FDA-Public Use
  Company Number: AU-PFIZER INC-2016382017

PATIENT
  Age: 16 Year
  Sex: Male
  Weight: 33 kg

DRUGS (4)
  1. ZARONTIN [Suspect]
     Active Substance: ETHOSUXIMIDE
     Indication: PETIT MAL EPILEPSY
     Dosage: 250 MG, 2X/DAY
     Route: 048
  2. EPILIM [Concomitant]
     Active Substance: VALPROATE SODIUM
     Dosage: 200 MG, 2X/DAY
     Route: 048
  3. ZARONTIN [Suspect]
     Active Substance: ETHOSUXIMIDE
     Indication: PETIT MAL EPILEPSY
     Dosage: 5 MG, 2X/DAY
     Route: 048
  4. EPILIM [Concomitant]
     Active Substance: VALPROATE SODIUM
     Dosage: 100 MG, 1X/DAY
     Route: 048

REACTIONS (3)
  - Choking [Unknown]
  - Wrong technique in product usage process [Unknown]
  - Retching [Unknown]

NARRATIVE: CASE EVENT DATE: 20160801
